FAERS Safety Report 18801681 (Version 3)
Quarter: 2021Q1

REPORT INFORMATION
  Report Type: Report from Study
  Country: PE (occurrence: PE)
  Receive Date: 20210128
  Receipt Date: 20210225
  Transmission Date: 20210419
  Serious: Yes (Death, Life-Threatening, Other)
  Sender: FDA-Public Use
  Company Number: PE-SEATTLE GENETICS-2021SGN00330

PATIENT
  Age: 71 Year
  Sex: Male

DRUGS (1)
  1. BRENTUXIMAB VEDOTIN [Suspect]
     Active Substance: BRENTUXIMAB VEDOTIN
     Indication: HODGKIN^S DISEASE
     Dosage: 140 MILLIGRAM
     Route: 042
     Dates: start: 20201027

REACTIONS (9)
  - Lip oedema [Unknown]
  - Euphoric mood [Unknown]
  - Confusional state [Unknown]
  - Death [Fatal]
  - Pyrexia [Recovered/Resolved]
  - Blood pressure increased [Unknown]
  - Hypoaesthesia oral [Unknown]
  - Skin discolouration [Unknown]
  - Pulmonary mass [Unknown]

NARRATIVE: CASE EVENT DATE: 20201214
